FAERS Safety Report 4995092-5 (Version None)
Quarter: 2006Q2

REPORT INFORMATION
  Report Type: 
  Country: None (occurrence: None)
  Receive Date: 20060503
  Receipt Date: 20060419
  Transmission Date: 20061013
  Serious: Yes (Death, Life-Threatening)
  Sender: FDA-Public Use
  Company Number: US_0505116924

PATIENT
  Age: 41 Year
  Sex: Female
  Weight: 125.5 kg

DRUGS (15)
  1. ZYPREXA [Suspect]
     Indication: DELUSION
     Dosage: 15 MG, EACH EVENING, ORAL
     Route: 048
     Dates: start: 20000509
  2. PROZAC [Concomitant]
  3. BUSPAR [Concomitant]
  4. DIVALPROEX SODIUM [Concomitant]
  5. TRAZODONE HCL [Concomitant]
  6. CELEXA [Concomitant]
  7. ATORVASTATIN CALCIUM [Concomitant]
  8. NORVASC [Concomitant]
  9. ESTROPIPATE [Concomitant]
  10. HYDROCHLOROTHIAZIDE [Concomitant]
  11. LISINOPRIL [Concomitant]
  12. XANAX [Concomitant]
  13. LOPID [Concomitant]
  14. DEPAKOTE [Concomitant]
  15. COREG [Concomitant]

REACTIONS (23)
  - ARRHYTHMIA [None]
  - BLOOD ALKALINE PHOSPHATASE INCREASED [None]
  - BRONCHITIS [None]
  - CARDIO-RESPIRATORY ARREST [None]
  - DIABETES MELLITUS NON-INSULIN-DEPENDENT [None]
  - GLYCOSURIA [None]
  - HIGH DENSITY LIPOPROTEIN DECREASED [None]
  - HYPERCHOLESTEROLAEMIA [None]
  - HYPERGLYCAEMIA [None]
  - HYPERTENSION [None]
  - HYPERTRIGLYCERIDAEMIA [None]
  - INGROWING NAIL [None]
  - KETONURIA [None]
  - OBESITY [None]
  - OCCULT BLOOD POSITIVE [None]
  - OEDEMA PERIPHERAL [None]
  - PHARYNGITIS [None]
  - THERAPY NON-RESPONDER [None]
  - TREATMENT NONCOMPLIANCE [None]
  - URINARY TRACT INFECTION [None]
  - VAGINAL CANDIDIASIS [None]
  - VENTRICULAR FIBRILLATION [None]
  - WEIGHT FLUCTUATION [None]
